FAERS Safety Report 5328397-9 (Version None)
Quarter: 2007Q2

REPORT INFORMATION
  Report Type: 
  Country: None (occurrence: None)
  Receive Date: 20070515
  Receipt Date: 20070515
  Transmission Date: 20071010
  Serious: Yes (Hospitalization)
  Sender: FDA-Public Use
  Company Number: None

PATIENT
  Sex: Female
  Weight: 67.1 kg

DRUGS (2)
  1. CISPLATIN [Suspect]
     Dosage: 40 MG
  2. GEMCITABINE HCL [Suspect]
     Dosage: 3240 MG

REACTIONS (2)
  - DIARRHOEA [None]
  - HAEMATOCRIT DECREASED [None]
